FAERS Safety Report 8168760-4 (Version None)
Quarter: 2012Q1

REPORT INFORMATION
  Report Type: 
  Country: None (occurrence: None)
  Receive Date: 20120227
  Receipt Date: 20120216
  Transmission Date: 20120608
  Serious: Yes (Other)
  Sender: FDA-Public Use
  Company Number: US-BAXTER-2012BH003955

PATIENT
  Sex: Male
  Weight: 99 kg

DRUGS (4)
  1. DIANEAL [Suspect]
     Indication: PERITONEAL DIALYSIS
     Route: 033
     Dates: start: 20111229
  2. DIANEAL [Suspect]
     Indication: PERITONEAL DIALYSIS
     Route: 033
     Dates: end: 20111201
  3. LANTUS [Concomitant]
     Indication: DIABETES MELLITUS
     Route: 065
  4. NOVOLOG [Concomitant]
     Indication: DIABETES MELLITUS
     Route: 065

REACTIONS (1)
  - BLOOD GLUCOSE FLUCTUATION [None]
